FAERS Safety Report 11371704 (Version 3)
Quarter: 2015Q4

REPORT INFORMATION
  Report Type: Spontaneous
  Country: JP (occurrence: JP)
  Receive Date: 20150812
  Receipt Date: 20151104
  Transmission Date: 20160304
  Serious: Yes (Hospitalization, Other)
  Sender: FDA-Public Use
  Company Number: JP-BRISTOL-MYERS SQUIBB COMPANY-BMS-2015-052490

PATIENT
  Age: 67 Year
  Sex: Female
  Weight: 72 kg

DRUGS (4)
  1. ERBITUX [Suspect]
     Active Substance: CETUXIMAB
     Indication: RECTOSIGMOID CANCER
     Dosage: 660 MG, QWK
     Route: 041
     Dates: start: 20150702, end: 20150722
  2. GRANISETRON [Concomitant]
     Active Substance: GRANISETRON
     Indication: PRODUCT USED FOR UNKNOWN INDICATION
     Dosage: UNK
     Route: 042
     Dates: start: 20150702, end: 20150722
  3. ORGADRONE                          /00016002/ [Concomitant]
     Indication: PRODUCT USED FOR UNKNOWN INDICATION
     Dosage: UNK
     Route: 042
     Dates: start: 20150702, end: 20150722
  4. CPT-11 [Concomitant]
     Active Substance: IRINOTECAN
     Indication: RECTOSIGMOID CANCER
     Dosage: 160 MG, QWK
     Route: 041
     Dates: start: 20150702, end: 20150722

REACTIONS (5)
  - Diarrhoea [Unknown]
  - Disseminated intravascular coagulation [Recovering/Resolving]
  - Neutrophil count decreased [Recovered/Resolved]
  - Cardiac failure [Recovered/Resolved]
  - Platelet count decreased [Recovered/Resolved]

NARRATIVE: CASE EVENT DATE: 20150711
